FAERS Safety Report 17547338 (Version 1)
Quarter: 2020Q1

REPORT INFORMATION
  Report Type: Spontaneous
  Country: CH (occurrence: CH)
  Receive Date: 20200316
  Receipt Date: 20200316
  Transmission Date: 20200409
  Serious: Yes (Congenital Anomaly)
  Sender: FDA-Public Use
  Company Number: CH-009507513-2003CHE003082

PATIENT
  Sex: Female

DRUGS (13)
  1. HALDOL [Suspect]
     Active Substance: HALOPERIDOL
     Dosage: UNK
  2. FERROUS GLUCONATE [Concomitant]
     Active Substance: FERROUS GLUCONATE
  3. DEPAKINE [Suspect]
     Active Substance: VALPROATE SODIUM
     Indication: BIPOLAR DISORDER
     Dosage: UNK
     Dates: start: 200709
  4. ELEVIT [Concomitant]
     Active Substance: FOLIC ACID\IRON\MINERALS\VITAMINS
  5. GYNO-PEVARYL [Suspect]
     Active Substance: ECONAZOLE NITRATE
     Dosage: UNK
     Route: 067
  6. VALIUM [Suspect]
     Active Substance: DIAZEPAM
     Dosage: UNK
  7. REMERON [Suspect]
     Active Substance: MIRTAZAPINE
     Dosage: UNK
     Dates: start: 2006
  8. TEMESTA (LORAZEPAM) [Suspect]
     Active Substance: LORAZEPAM
     Dosage: OVERDOSE
  9. PIPAMPERONE [Suspect]
     Active Substance: PIPAMPERONE
     Dosage: UNK
  10. ATENOLOL. [Suspect]
     Active Substance: ATENOLOL
     Dosage: UNK
  11. CO-AMOXICILLIN [Suspect]
     Active Substance: AMOXICILLIN\CLAVULANATE POTASSIUM
  12. BUSPIRONE HYDROCHLORIDE. [Suspect]
     Active Substance: BUSPIRONE HYDROCHLORIDE
     Dosage: UNK
  13. TRAZODONE HYDROCHLORIDE. [Suspect]
     Active Substance: TRAZODONE HYDROCHLORIDE
     Dosage: UNK

REACTIONS (3)
  - Developmental delay [Not Recovered/Not Resolved]
  - Meningomyelocele [Not Recovered/Not Resolved]
  - Hydrocephalus [Not Recovered/Not Resolved]
